FAERS Safety Report 5387094-4 (Version None)
Quarter: 2007Q3

REPORT INFORMATION
  Report Type: 
  Country: None (occurrence: None)
  Receive Date: 20070711
  Receipt Date: 20070626
  Transmission Date: 20080115
  Serious: Yes (Other)
  Sender: FDA-Public Use
  Company Number: 2007BI013762

PATIENT
  Age: 23 Year
  Sex: Female

DRUGS (2)
  1. NATALIZUMAB [Suspect]
     Indication: MULTIPLE SCLEROSIS
     Dosage: 300 MG; QM; IV
     Route: 042
     Dates: start: 20070111
  2. AVONEX [Concomitant]

REACTIONS (2)
  - APPENDICECTOMY [None]
  - SINUSITIS [None]
